FAERS Safety Report 24905024 (Version 2)
Quarter: 2025Q1

REPORT INFORMATION
  Report Type: Spontaneous
  Country: GB (occurrence: GB)
  Receive Date: 20250130
  Receipt Date: 20250305
  Transmission Date: 20250409
  Serious: Yes (Hospitalization)
  Sender: MYLAN
  Company Number: GB-MYLANLABS-2025M1007859

PATIENT
  Sex: Male

DRUGS (4)
  1. CLOZARIL [Suspect]
     Active Substance: CLOZAPINE
     Indication: Schizophrenia
     Dates: start: 20080902, end: 20250122
  2. CLOZARIL [Suspect]
     Active Substance: CLOZAPINE
     Route: 048
     Dates: start: 20080902, end: 20250122
  3. CLOZARIL [Suspect]
     Active Substance: CLOZAPINE
     Route: 048
     Dates: start: 20080902, end: 20250122
  4. CLOZARIL [Suspect]
     Active Substance: CLOZAPINE
     Dates: start: 20080902, end: 20250122

REACTIONS (3)
  - Abnormal behaviour [Unknown]
  - Eosinophilia [Unknown]
  - Treatment noncompliance [Unknown]
